FAERS Safety Report 8298790-3 (Version None)
Quarter: 2012Q2

REPORT INFORMATION
  Report Type: 
  Country: None (occurrence: None)
  Receive Date: 20120419
  Receipt Date: 20120413
  Transmission Date: 20120825
  Serious: Yes (Other)
  Sender: FDA-Public Use
  Company Number: GB-UCBSA-055340

PATIENT
  Age: 39 Year
  Sex: Female
  Weight: 48.9 kg

DRUGS (10)
  1. LANSOPRAZOLE [Concomitant]
     Indication: GASTRITIS
     Route: 048
     Dates: start: 20120301
  2. LOPERAMIDE [Concomitant]
     Indication: DIARRHOEA
     Route: 048
     Dates: start: 19961217
  3. ACETAMINOPHEN AND CODEINE PHOSPHATE [Suspect]
     Indication: BACK PAIN
     Dosage: 1-2 CAPSULE, 3 TIMES DAILY
  4. ACETAMINOPHEN AND CODEINE PHOSPHATE [Suspect]
     Indication: ABDOMINAL PAIN
     Dosage: 1-2 CAPSULE, 3 TIMES DAILY
  5. WARFARIN SODIUM [Concomitant]
     Indication: DEEP VEIN THROMBOSIS
  6. ACETAMINOPHEN W/ CODEINE [Suspect]
  7. CO-DYDRAMOL [Suspect]
     Indication: BACK PAIN
     Dosage: 1-2 THREE TIMES DAILY
     Route: 048
     Dates: start: 20101201
  8. HALOPERIDOL [Concomitant]
     Indication: SCHIZOPHRENIA
     Route: 048
     Dates: start: 20050407
  9. CO-DYDRAMOL [Suspect]
     Indication: ABDOMINAL PAIN
     Dosage: 1-2 THREE TIMES DAILY
     Route: 048
     Dates: start: 20101201
  10. CITALOPRAM [Concomitant]
     Indication: DEPRESSION
     Route: 048
     Dates: start: 20050831

REACTIONS (6)
  - OEDEMA PERIPHERAL [None]
  - DYSPNOEA [None]
  - DYSPHAGIA [None]
  - APHAGIA [None]
  - RASH [None]
  - PAIN [None]
